FAERS Safety Report 7978219-2 (Version None)
Quarter: 2011Q4

REPORT INFORMATION
  Report Type: 
  Country: None (occurrence: None)
  Receive Date: 20111209
  Receipt Date: 20111125
  Transmission Date: 20120403
  Serious: Yes (Hospitalization)
  Sender: FDA-Public Use
  Company Number: DSA_48308_2011

PATIENT
  Sex: Male

DRUGS (9)
  1. ENALAPRIL MALEATE [Suspect]
     Indication: PRODUCT USED FOR UNKNOWN INDICATION
     Dosage: 10 MG QD ORAL
     Route: 048
     Dates: start: 20101201, end: 20110610
  2. LEVOTHYROXINE SODIUM [Concomitant]
  3. OMEXEL [Concomitant]
  4. FORLAX /00754501/ [Concomitant]
  5. PANTOPRAZOLE SODIUM [Concomitant]
  6. CRESTOR [Concomitant]
  7. MEDIATENSYL /00631801/ [Concomitant]
  8. AMLODIPINE BESYLATE [Concomitant]
  9. PERMIXON [Concomitant]

REACTIONS (4)
  - SALIVARY HYPERSECRETION [None]
  - MACROGLOSSIA [None]
  - TONGUE OEDEMA [None]
  - TONGUE BITING [None]
